FAERS Safety Report 18897232 (Version 1)
Quarter: 2021Q1

REPORT INFORMATION
  Report Type: Spontaneous
  Country: BE (occurrence: BE)
  Receive Date: 20210215
  Receipt Date: 20210215
  Transmission Date: 20210420
  Serious: Yes (Disabling, Other)
  Sender: FDA-Public Use
  Company Number: BE-GE HEALTHCARE LIFE SCIENCES-OSCN-NO-0902S-0124

PATIENT

DRUGS (14)
  1. SPIRONOLACTONE. [Concomitant]
     Active Substance: SPIRONOLACTONE
  2. FUROSEMIDE. [Concomitant]
     Active Substance: FUROSEMIDE
  3. CAPTOPRIL. [Concomitant]
     Active Substance: CAPTOPRIL
     Indication: PRODUCT USED FOR UNKNOWN INDICATION
  4. IMMUNOSUPPRESSIVE THERAPIES [Concomitant]
  5. IRON SUPPLEMENTATION [Concomitant]
     Indication: SUPPLEMENTATION THERAPY
  6. OMNISCAN [Suspect]
     Active Substance: GADODIAMIDE
     Indication: RENAL TRANSPLANT
     Dosage: 17.2 ML, 0.1 MMOL/KG
     Route: 042
     Dates: start: 20020116, end: 20020116
  7. ATORVASTATIN [Concomitant]
     Active Substance: ATORVASTATIN
  8. AMLODIPINE [Concomitant]
     Active Substance: AMLODIPINE BESYLATE
  9. OMNISCAN [Suspect]
     Active Substance: GADODIAMIDE
     Indication: ANGIOGRAM
     Dosage: 17.2 ML,  0.1 MMOL/KG OF EITHER OMNISCAN OR DOTAREM
     Route: 042
     Dates: start: 20020507, end: 20020507
  10. DOTAREM [Suspect]
     Active Substance: GADOTERATE MEGLUMINE
     Indication: MAGNETIC RESONANCE IMAGING
     Dosage: UNK
     Route: 065
  11. EPOETIN ALFA [Suspect]
     Active Substance: ERYTHROPOIETIN
     Indication: PRODUCT USED FOR UNKNOWN INDICATION
     Dosage: UNK
     Route: 065
  12. MOXONIDINE [Concomitant]
     Active Substance: MOXONIDINE
  13. OMNISCAN [Suspect]
     Active Substance: GADODIAMIDE
     Dosage: 17.2 ML, I.E. 0.1 MMOL/KG OF EITHER OMNISCAN OR DOTAREM
     Route: 042
     Dates: start: 20020619, end: 20020619
  14. METOPROLOL. [Concomitant]
     Active Substance: METOPROLOL
     Indication: HYPERTENSION

REACTIONS (8)
  - Nephrogenic systemic fibrosis [Not Recovered/Not Resolved]
  - Musculoskeletal stiffness [Unknown]
  - Colitis microscopic [Unknown]
  - Skin hypertrophy [Unknown]
  - Skin induration [Unknown]
  - Joint range of motion decreased [Unknown]
  - Pain [Unknown]
  - Pruritus [Unknown]

NARRATIVE: CASE EVENT DATE: 200212
